FAERS Safety Report 5460398-2 (Version None)
Quarter: 2007Q3

REPORT INFORMATION
  Report Type: 
  Country: None (occurrence: None)
  Receive Date: 20070919
  Receipt Date: 20070710
  Transmission Date: 20080115
  Serious: No
  Sender: FDA-Public Use
  Company Number: US-ASTRAZENECA-2007UW16131

PATIENT
  Age: 49 Year
  Sex: Female

DRUGS (5)
  1. SEROQUEL [Suspect]
     Indication: BIPOLAR I DISORDER
     Route: 048
     Dates: start: 20070301
  2. SEROQUEL [Suspect]
     Route: 048
     Dates: start: 20070301
  3. SEROQUEL [Suspect]
     Route: 048
  4. LAMICTAL [Concomitant]
  5. LEXAPRO [Concomitant]

REACTIONS (3)
  - HYPOAESTHESIA [None]
  - NERVE COMPRESSION [None]
  - PAIN [None]
